FAERS Safety Report 6434902-1 (Version None)
Quarter: 2009Q4

REPORT INFORMATION
  Report Type: 
  Country: None (occurrence: None)
  Receive Date: 20091106
  Receipt Date: 20091027
  Transmission Date: 20100525
  Serious: Yes (Hospitalization)
  Sender: FDA-Public Use
  Company Number: 418680

PATIENT
  Age: 32 Year
  Sex: Female

DRUGS (6)
  1. CYTARABINE [Suspect]
     Indication: ACUTE MYELOID LEUKAEMIA
     Dosage: 2 G/M2
     Route: 064
  2. CYTARABINE [Suspect]
     Indication: DISEASE RECURRENCE
     Dosage: 2 G/M2
     Route: 064
  3. (FLUDARABINE) [Suspect]
     Indication: ACUTE MYELOID LEUKAEMIA
     Dosage: 30 MG/M2
  4. (FLUDARABINE) [Suspect]
     Indication: DISEASE RECURRENCE
     Dosage: 30 MG/M2
  5. IDARUBICIN HCL [Suspect]
     Indication: ACUTE MYELOID LEUKAEMIA
     Dosage: 12 MG/M2
  6. IDARUBICIN HCL [Suspect]
     Indication: DISEASE RECURRENCE
     Dosage: 12 MG/M2

REACTIONS (5)
  - APLASIA [None]
  - DISEASE RECURRENCE [None]
  - DRUG EXPOSURE DURING PREGNANCY [None]
  - INTRA-UTERINE DEATH [None]
  - MYELOID LEUKAEMIA [None]
